FAERS Safety Report 8152311-4 (Version None)
Quarter: 2012Q1

REPORT INFORMATION
  Report Type: 
  Country: None (occurrence: None)
  Receive Date: 20120221
  Receipt Date: 20120214
  Transmission Date: 20120608
  Serious: Yes (Hospitalization, Other)
  Sender: FDA-Public Use
  Company Number: US-BAYER-200938597NA

PATIENT
  Age: 44 Year
  Sex: Female
  Weight: 68.027 kg

DRUGS (9)
  1. TETANUS VACCIN [TETANUS VACCINE] [Concomitant]
     Dosage: 0.5 MG, UNK
  2. FLEXERIL [Concomitant]
     Route: 048
  3. VITAMIN TAB [Concomitant]
     Dosage: UNK UNK, QD
  4. YAZ [Suspect]
     Indication: CONTRACEPTION
     Dosage: UNK
     Dates: start: 20061201, end: 20080901
  5. XANAX [Concomitant]
  6. VICODIN [Concomitant]
  7. LEXAPRO [Concomitant]
     Dosage: 10 MG/D, UNK
     Route: 048
  8. KEFLEX [Concomitant]
     Dosage: 500 MG, UNK
  9. YASMIN [Suspect]
     Indication: CONTRACEPTION

REACTIONS (2)
  - DEEP VEIN THROMBOSIS [None]
  - PULMONARY EMBOLISM [None]
